FAERS Safety Report 18224488 (Version 1)
Quarter: 2020Q3

REPORT INFORMATION
  Report Type: Spontaneous
  Country: US (occurrence: US)
  Receive Date: 20200902
  Receipt Date: 20200902
  Transmission Date: 20201103
  Serious: Yes (Other)
  Sender: FDA-Public Use
  Company Number: US-PURDUE-USA-2020-0154317

PATIENT
  Sex: Female
  Weight: 81.63 kg

DRUGS (1)
  1. OXYCODONE/ ACETAMINOPHEN TABLETS [Suspect]
     Active Substance: ACETAMINOPHEN\OXYCODONE HYDROCHLORIDE
     Indication: CANCER PAIN
     Dosage: 10/325 MG 1?2 TABLETS Q4?6 HRS
     Route: 048
     Dates: start: 2018

REACTIONS (9)
  - Palpitations [Unknown]
  - Unevaluable event [Unknown]
  - Anaphylactic shock [Recovered/Resolved]
  - Swelling face [Unknown]
  - Oral discomfort [Unknown]
  - Dyspnoea [Unknown]
  - Hypoaesthesia oral [Unknown]
  - Swelling [Unknown]
  - Rash macular [Unknown]
